FAERS Safety Report 20438565 (Version 1)
Quarter: 2022Q1

REPORT INFORMATION
  Report Type: Spontaneous
  Country: US (occurrence: None)
  Receive Date: 20220204
  Receipt Date: 20220204
  Transmission Date: 20220424
  Serious: Yes (Death)
  Sender: FDA-Public Use
  Company Number: None

PATIENT
  Age: 58 Year
  Sex: Female

DRUGS (1)
  1. VUMERITY [Suspect]
     Active Substance: DIROXIMEL FUMARATE
     Indication: Multiple sclerosis
     Dosage: 465MG BID  BY MOUTH
     Route: 048
     Dates: start: 202009, end: 20220126

REACTIONS (2)
  - Sepsis [None]
  - Cystitis [None]

NARRATIVE: CASE EVENT DATE: 20220126
